FAERS Safety Report 14424381 (Version 1)
Quarter: 2018Q1

REPORT INFORMATION
  Report Type: Spontaneous
  Country: RU (occurrence: RU)
  Receive Date: 20180123
  Receipt Date: 20180123
  Transmission Date: 20180509
  Serious: Yes (Other)
  Sender: FDA-Public Use
  Company Number: RU-ASTRAZENECA-2018SE08043

PATIENT
  Age: 76 Year
  Sex: Male

DRUGS (5)
  1. ACTOVEGIN [Concomitant]
     Active Substance: BLOOD, BOVINE
  2. LORISTA [Concomitant]
     Active Substance: LOSARTAN POTASSIUM
  3. FORXIGA [Suspect]
     Active Substance: DAPAGLIFLOZIN
     Indication: TYPE 2 DIABETES MELLITUS
     Route: 048
  4. BETALOC [Concomitant]
     Active Substance: METOPROLOL TARTRATE
  5. DIUVER [Concomitant]
     Active Substance: TORSEMIDE

REACTIONS (5)
  - Gangrene [Recovered/Resolved with Sequelae]
  - Laceration [Unknown]
  - Drug administered to patient of inappropriate age [Unknown]
  - Intentional product misuse [Not Recovered/Not Resolved]
  - Off label use [Unknown]

NARRATIVE: CASE EVENT DATE: 2016
